FAERS Safety Report 4880410-9 (Version None)
Quarter: 2005Q4

REPORT INFORMATION
  Report Type: 
  Country: None (occurrence: None)
  Receive Date: 20051223
  Receipt Date: 20051130
  Transmission Date: 20060501
  Serious: No
  Sender: FDA-Public Use
  Company Number: 05P-163-0302818-00

PATIENT
  Age: 57 Year
  Sex: Female
  Weight: 62.5964 kg

DRUGS (8)
  1. HUMIRA [Suspect]
     Indication: RHEUMATOID ARTHRITIS
     Dosage: SEE IMAGE
     Route: 058
     Dates: start: 20050101, end: 20050301
  2. HUMIRA [Suspect]
     Indication: RHEUMATOID ARTHRITIS
     Dosage: SEE IMAGE
     Route: 058
     Dates: start: 20050401, end: 20050401
  3. HUMIRA [Suspect]
     Indication: RHEUMATOID ARTHRITIS
     Dosage: SEE IMAGE
     Route: 058
     Dates: start: 20050501, end: 20050801
  4. PREDNISONE [Concomitant]
  5. PARACETAMOL [Concomitant]
  6. CALCIUM GLUCONATE [Concomitant]
  7. VITAMINS [Concomitant]
  8. HYDROXYCHLOROQUINE PHOSPHATE [Concomitant]

REACTIONS (2)
  - FURUNCLE [None]
  - IMMUNODEFICIENCY [None]
